FAERS Safety Report 15208275 (Version 2)
Quarter: 2018Q3

REPORT INFORMATION
  Report Type: Report from Study
  Country: None (occurrence: RO)
  Receive Date: 20180727
  Receipt Date: 20180924
  Transmission Date: 20181010
  Serious: Yes (Life-Threatening, Hospitalization, Disabling, Other)
  Sender: FDA-Public Use
  Company Number: RO-ABBVIE-18S-135-2427441-00

PATIENT
  Age: 65 Year
  Sex: Female
  Weight: 60 kg

DRUGS (10)
  1. VIEKIRAX [Suspect]
     Active Substance: OMBITASVIR\PARITAPREVIR\RITONAVIR
     Indication: HEPATITIS C
     Route: 048
     Dates: start: 20180523, end: 20180815
  2. NITROMINT [Concomitant]
     Active Substance: NITROGLYCERIN
     Indication: HYPERTENSION
     Route: 048
  3. VIEKIRAX [Suspect]
     Active Substance: OMBITASVIR\PARITAPREVIR\RITONAVIR
     Indication: HEPATIC CIRRHOSIS
  4. EXVIERA [Suspect]
     Active Substance: DASABUVIR
     Indication: HEPATITIS C
     Route: 048
     Dates: start: 20180523, end: 20180815
  5. EXVIERA [Suspect]
     Active Substance: DASABUVIR
     Indication: HEPATIC CIRRHOSIS
  6. SOTALOL. [Concomitant]
     Active Substance: SOTALOL
     Indication: HYPERTENSION
     Route: 048
  7. HYDROCHLOROTHIAZIDE. [Concomitant]
     Active Substance: HYDROCHLOROTHIAZIDE
     Indication: HYPERTENSION
     Route: 048
  8. LEVEMIR [Concomitant]
     Active Substance: INSULIN DETEMIR
     Indication: DIABETES MELLITUS
     Dosage: 20
  9. PERINDOPRIL [Concomitant]
     Active Substance: PERINDOPRIL
     Indication: HYPERTENSION
     Route: 048
  10. MILGAMMA [Concomitant]
     Active Substance: VITAMIN B
     Indication: DIABETES MELLITUS
     Dosage: 100

REACTIONS (36)
  - Bronchial neoplasm [Not Recovered/Not Resolved]
  - Chest pain [Recovered/Resolved]
  - Pleural effusion [Unknown]
  - Respiratory failure [Not Recovered/Not Resolved]
  - Chest discomfort [Recovered/Resolved]
  - Lung disorder [Unknown]
  - Adenocarcinoma [Unknown]
  - Metastases to liver [Unknown]
  - Hepatic neoplasm [Unknown]
  - Cough [Recovered/Resolved]
  - Decreased appetite [Recovered/Resolved]
  - Anxiety [Recovered/Resolved]
  - Ocular icterus [Unknown]
  - Chest pain [Recovered/Resolved]
  - Asthenia [Recovered/Resolved]
  - Abdominal pain upper [Recovering/Resolving]
  - Liver disorder [Unknown]
  - Dyspnoea exertional [Recovered/Resolved]
  - Fatigue [Recovering/Resolving]
  - Asthenia [Recovered/Resolved]
  - Dyspnoea at rest [Recovered/Resolved]
  - Eosinopenia [Unknown]
  - Oedema peripheral [Recovering/Resolving]
  - Metastases to lung [Not Recovered/Not Resolved]
  - Weight decreased [Recovered/Resolved]
  - Oedema peripheral [Recovered/Resolved]
  - Vocal cord paralysis [Unknown]
  - Lymphopenia [Unknown]
  - Pleurisy [Not Recovered/Not Resolved]
  - Vertigo [Recovering/Resolving]
  - Emphysema [Unknown]
  - Abdominal pain [Unknown]
  - Neutrophilia [Unknown]
  - Productive cough [Not Recovered/Not Resolved]
  - Dyspnoea [Unknown]
  - Metastases to lung [Not Recovered/Not Resolved]

NARRATIVE: CASE EVENT DATE: 201806
